FAERS Safety Report 5512282-3 (Version None)
Quarter: 2007Q4

REPORT INFORMATION
  Report Type: 
  Country: None (occurrence: None)
  Receive Date: 20071112
  Receipt Date: 20070912
  Transmission Date: 20080405
  Serious: No
  Sender: FDA-Public Use
  Company Number: A0681591A

PATIENT
  Sex: Female

DRUGS (1)
  1. VERAMYST [Suspect]
     Indication: DRUG USE FOR UNKNOWN INDICATION
     Route: 045

REACTIONS (5)
  - CONDITION AGGRAVATED [None]
  - FOOD ALLERGY [None]
  - INSOMNIA [None]
  - PRURITUS [None]
  - RHINITIS ALLERGIC [None]
